FAERS Safety Report 6333924-9 (Version None)
Quarter: 2009Q3

REPORT INFORMATION
  Report Type: 
  Country: None (occurrence: None)
  Receive Date: 20090829
  Receipt Date: 20090629
  Transmission Date: 20100115
  Serious: No
  Sender: FDA-Public Use
  Company Number: US-ABBOTT-09P-163-0582872-00

PATIENT
  Sex: Female
  Weight: 68.1 kg

DRUGS (13)
  1. SIMCOR [Suspect]
     Indication: HIGH DENSITY LIPOPROTEIN DECREASED
     Dosage: 500/20 MG 1 TABLET QHS
     Route: 048
     Dates: start: 20090623
  2. VERAPAMIL [Suspect]
     Indication: HYPERTENSION
     Route: 048
  3. CELEBREX [Concomitant]
     Indication: ARTHRITIS
  4. OMEPRAZOLE [Concomitant]
     Indication: GASTRIC ULCER
  5. VITAMINS [Concomitant]
     Indication: DRUG USE FOR UNKNOWN INDICATION
  6. ASPIRIN [Concomitant]
     Indication: DRUG USE FOR UNKNOWN INDICATION
  7. NITROFURANTOIN [Concomitant]
     Indication: RENAL DISORDER
  8. CLONAZEPAM [Concomitant]
     Indication: ANXIETY
  9. RISPERDAL [Concomitant]
     Indication: ANXIETY
  10. NORTRIPTYLINE HCL [Concomitant]
     Indication: ANXIETY
  11. LISINOPRIL [Concomitant]
     Indication: HYPERTENSION
  12. KLOR-CON [Concomitant]
     Indication: DRUG USE FOR UNKNOWN INDICATION
  13. FUROSEMIDE [Concomitant]
     Indication: OEDEMA PERIPHERAL

REACTIONS (4)
  - ABDOMINAL PAIN UPPER [None]
  - FLUSHING [None]
  - NAUSEA [None]
  - SENSATION OF HEAVINESS [None]
